FAERS Safety Report 26123465 (Version 1)
Quarter: 2025Q4

REPORT INFORMATION
  Report Type: Report from Study
  Country: CA (occurrence: CA)
  Receive Date: 20251204
  Receipt Date: 20251204
  Transmission Date: 20260117
  Serious: Yes (Other)
  Sender: CELLTRION
  Company Number: CA-CELLTRION INC.-2025CA037865

PATIENT

DRUGS (1)
  1. INFLIXIMAB-DYYB [Suspect]
     Active Substance: INFLIXIMAB-DYYB
     Indication: Crohn^s disease
     Dosage: 600 MG (MAINTENANCE - 600 MG - IV   (INTRAVENOUS) EVERY 7 WEEKS)
     Route: 042
     Dates: start: 20251009

REACTIONS (9)
  - Pain in extremity [Unknown]
  - Arthralgia [Unknown]
  - Peripheral swelling [Recovered/Resolved]
  - Finger deformity [Unknown]
  - Diarrhoea [Unknown]
  - Headache [Unknown]
  - Fatigue [Unknown]
  - Off label use [Unknown]
  - Therapeutic response changed [Unknown]

NARRATIVE: CASE EVENT DATE: 20251009
